FAERS Safety Report 6793446-8 (Version None)
Quarter: 2010Q2

REPORT INFORMATION
  Report Type: 
  Country: None (occurrence: None)
  Receive Date: 20100624
  Receipt Date: 20100312
  Transmission Date: 20101027
  Serious: Yes (Death)
  Sender: FDA-Public Use
  Company Number: US-MYLANLABS-2010S1004365

PATIENT
  Age: 49 Year
  Sex: Female

DRUGS (6)
  1. CLOZAPINE [Suspect]
     Route: 048
     Dates: start: 20011130
  2. LITHIUM [Concomitant]
  3. TRAZODONE HYDROCHLORIDE [Concomitant]
  4. BUPROPION HCL [Concomitant]
  5. COUMADIN [Concomitant]
  6. ALBUTEROL [Concomitant]

REACTIONS (1)
  - DEATH [None]
